FAERS Safety Report 9480472 (Version 1)
Quarter: 2013Q3

REPORT INFORMATION
  Report Type: Spontaneous
  Country: US (occurrence: US)
  Receive Date: 20130828
  Receipt Date: 20130828
  Transmission Date: 20140515
  Serious: Yes (Life-Threatening, Hospitalization, Other)
  Sender: FDA-Public Use
  Company Number: US-AMGEN-KDL108324

PATIENT
  Age: 52 Year
  Sex: Male

DRUGS (1)
  1. ENBREL [Suspect]
     Indication: PSORIASIS
     Dosage: 25 MG, 2 TIMES/WK
     Route: 058
     Dates: start: 20030201, end: 20041118

REACTIONS (6)
  - Spinal fusion surgery [Unknown]
  - Septic shock [Unknown]
  - Urinary tract infection [Unknown]
  - Loss of consciousness [Unknown]
  - Asthenia [Unknown]
  - Localised infection [Unknown]
